FAERS Safety Report 8189413-2 (Version None)
Quarter: 2012Q1

REPORT INFORMATION
  Report Type: 
  Country: None (occurrence: None)
  Receive Date: 20120307
  Receipt Date: 20120225
  Transmission Date: 20120608
  Serious: Yes (Hospitalization)
  Sender: FDA-Public Use
  Company Number: IT-UCBSA-047114

PATIENT
  Age: 27 Year
  Sex: Male
  Weight: 80 kg

DRUGS (1)
  1. CERTOLIZUMAB PEGOL [Suspect]
     Indication: SPONDYLITIS
     Dosage: BLINDED MG; NO. OF DOSES RECEIVED: 14
     Route: 058
     Dates: start: 20110517, end: 20110906

REACTIONS (1)
  - SINUSITIS [None]
